FAERS Safety Report 14484309 (Version 3)
Quarter: 2018Q2

REPORT INFORMATION
  Report Type: Spontaneous
  Country: JP (occurrence: JP)
  Receive Date: 20180205
  Receipt Date: 20180627
  Transmission Date: 20180711
  Serious: Yes (Hospitalization)
  Sender: FDA-Public Use
  Company Number: JP-ROCHE-535501

PATIENT
  Age: 71 Year
  Sex: Male
  Weight: 66.8 kg

DRUGS (7)
  1. ONCOVIN [Concomitant]
     Active Substance: VINCRISTINE SULFATE
     Indication: DIFFUSE LARGE B-CELL LYMPHOMA
     Dosage: SUBSEQUESNT DOSES ON 10/MAR/2007 AND 07/APR/2007
     Route: 042
  2. LOXONIN [Concomitant]
     Active Substance: LOXOPROFEN SODIUM
     Indication: PREMEDICATION
     Dosage: SUBSEQUESNT DOSES ON 10/MAR/2007 AND 07/APR/2007
     Route: 048
  3. PREDONINE [Concomitant]
     Active Substance: PREDNISOLONE
     Indication: PRODUCT USED FOR UNKNOWN INDICATION
     Dosage: SUBSEQUESNT DOSES ON 10/MAR/2007 AND 07/APR/2007
     Route: 048
  4. ENDOXAN [Concomitant]
     Active Substance: CYCLOPHOSPHAMIDE
     Dosage: SUBSEQUESNT DOSES ON 10/MAR/2007 AND 07/APR/2007
     Route: 042
     Dates: start: 20070210
  5. PINORUBIN [Concomitant]
     Active Substance: PIRARUBICIN
     Indication: DIFFUSE LARGE B-CELL LYMPHOMA
     Dosage: SUBSEQUESNT DOSES ON 10/MAR/2007 AND 07/APR/2007
     Route: 042
  6. TAVEGYL [Concomitant]
     Active Substance: CLEMASTINE FUMARATE
     Indication: PREMEDICATION
     Dosage: SUBSEQUESNT DOSES ON 10/MAR/2007 AND 07/APR/2007
     Route: 048
  7. RITUXAN [Suspect]
     Active Substance: RITUXIMAB
     Indication: DIFFUSE LARGE B-CELL LYMPHOMA
     Dosage: SUBSEQUESNT DOSES ON 10/MAR/2007 AND 07/APR/2007
     Route: 042

REACTIONS (3)
  - Rectal adenocarcinoma [Not Recovered/Not Resolved]
  - Jaundice [Recovered/Resolved]
  - Hepatocellular carcinoma [Not Recovered/Not Resolved]

NARRATIVE: CASE EVENT DATE: 20070626
